FAERS Safety Report 17794027 (Version 1)
Quarter: 2020Q2

REPORT INFORMATION
  Report Type: Spontaneous
  Country: US (occurrence: US)
  Receive Date: 20200515
  Receipt Date: 20200515
  Transmission Date: 20200714
  Serious: No
  Sender: FDA-Public Use
  Company Number: US-TEVA-2020-US-1236720

PATIENT
  Sex: Male
  Weight: 124.74 kg

DRUGS (1)
  1. VENLAFAXINE [Suspect]
     Active Substance: VENLAFAXINE HYDROCHLORIDE
     Indication: DEPRESSION
     Dosage: 3 DOSAGE FORMS DAILY; 150MG CAPSULE, 2 CAPSULES IN THE MORNING AND 1 CAPSULE IN THE EVENING BY MOUTH
     Route: 048

REACTIONS (2)
  - Malaise [Unknown]
  - Therapeutic product effect incomplete [Unknown]
